APPROVED DRUG PRODUCT: NICARDIPINE HYDROCHLORIDE
Active Ingredient: NICARDIPINE HYDROCHLORIDE
Strength: 25MG/10ML (2.5MG/ML)
Dosage Form/Route: INJECTABLE;INJECTION
Application: A078714 | Product #001
Applicant: HIKMA PHARMACEUTICALS USA INC
Approved: Dec 28, 2009 | RLD: No | RS: No | Type: DISCN